FAERS Safety Report 9476446 (Version 1)
Quarter: 2013Q3

REPORT INFORMATION
  Report Type: Spontaneous
  Country: US (occurrence: US)
  Receive Date: 20130826
  Receipt Date: 20130826
  Transmission Date: 20140515
  Serious: Yes (Other)
  Sender: FDA-Public Use
  Company Number: US-PFIZER INC-2013241085

PATIENT
  Age: 64 Year
  Sex: Male
  Weight: 107 kg

DRUGS (9)
  1. LIDOCAINE HCL [Suspect]
     Indication: ANAESTHESIA
     Dosage: 100 MG
  2. LIDOCAINE HCL [Suspect]
     Dosage: 2 ML OF 2%
  3. THIOPENTAL [Concomitant]
     Indication: ANAESTHESIA
     Dosage: 400 MG
     Route: 042
  4. VECURONIUM [Concomitant]
     Indication: ANAESTHESIA
     Dosage: 20 MG
     Route: 042
  5. ISOFLURANE [Concomitant]
     Indication: MAINTENANCE OF ANAESTHESIA
     Dosage: 0.5-0.8%
  6. PENTOBARBITAL [Concomitant]
     Indication: PREMEDICATION
     Dosage: 100 MG
  7. ATROPINE [Concomitant]
     Indication: PREMEDICATION
     Dosage: 0.4 MG
     Route: 030
  8. NITROUS OXIDE [Concomitant]
     Indication: MAINTENANCE OF ANAESTHESIA
     Dosage: 50% IN OXYGEN
  9. HYDROCHLOROTHIAZIDE [Concomitant]
     Indication: HYPERTENSION

REACTIONS (2)
  - Toxicity to various agents [Recovered/Resolved]
  - Cerebral disorder [Recovered/Resolved]
